FAERS Safety Report 6088507-5 (Version None)
Quarter: 2009Q1

REPORT INFORMATION
  Report Type: 
  Country: None (occurrence: None)
  Receive Date: 20090220
  Receipt Date: 20090220
  Transmission Date: 20090719
  Serious: Yes (Life-Threatening, Hospitalization)
  Sender: FDA-Public Use
  Company Number: None

PATIENT
  Sex: Female
  Weight: 81.6475 kg

DRUGS (6)
  1. MORPHINE SULFATE [Suspect]
     Indication: CERVICAL SPINAL STENOSIS
  2. HYDROCHLOROTHIAZIDE [Concomitant]
  3. NDAIDS [Concomitant]
  4. LYRICA [Concomitant]
  5. MORPHINE SULFATE [Concomitant]
  6. DETRAL LA [Concomitant]

REACTIONS (9)
  - COLITIS ISCHAEMIC [None]
  - COMMUNICATION DISORDER [None]
  - CONSCIOUSNESS FLUCTUATING [None]
  - DEAFNESS UNILATERAL [None]
  - ISCHAEMIA [None]
  - MALAISE [None]
  - RENAL FAILURE ACUTE [None]
  - SHOCK [None]
  - SPEECH DISORDER [None]
